FAERS Safety Report 8542247-9 (Version None)
Quarter: 2012Q3

REPORT INFORMATION
  Report Type: 
  Country: None (occurrence: None)
  Receive Date: 20120726
  Receipt Date: 20111025
  Transmission Date: 20120928
  Serious: No
  Sender: FDA-Public Use
  Company Number: US-ASTRAZENECA-2011SE61637

PATIENT
  Age: 56 Year
  Sex: Female
  Weight: 72.6 kg

DRUGS (7)
  1. SEROQUEL XR [Suspect]
     Indication: BIPOLAR DISORDER
     Route: 048
  2. SEROQUEL XR [Suspect]
     Route: 048
  3. SEROQUEL XR [Suspect]
     Route: 048
  4. SEROQUEL XR [Suspect]
     Route: 048
     Dates: start: 20110101
  5. SEROQUEL XR [Suspect]
     Route: 048
  6. ANTI-ANXIETY MEDICINE [Concomitant]
  7. CELEXA [Concomitant]
     Indication: DEPRESSION

REACTIONS (8)
  - AGITATION [None]
  - ANXIETY [None]
  - PANIC ATTACK [None]
  - TEARFULNESS [None]
  - INSOMNIA [None]
  - AFFECT LABILITY [None]
  - SOMNOLENCE [None]
  - FATIGUE [None]
